FAERS Safety Report 7971676-7 (Version None)
Quarter: 2011Q4

REPORT INFORMATION
  Report Type: 
  Country: None (occurrence: None)
  Receive Date: 20111212
  Receipt Date: 20111206
  Transmission Date: 20120403
  Serious: No
  Sender: FDA-Public Use
  Company Number: US-PFIZER INC-2011298590

PATIENT

DRUGS (2)
  1. OXYCODONE HYDROCHLORIDE [Suspect]
     Dosage: UNK
  2. OPANA [Suspect]

REACTIONS (4)
  - SOMNOLENCE [None]
  - MUSCULOSKELETAL PAIN [None]
  - ARTHRALGIA [None]
  - PAIN [None]
